FAERS Safety Report 9388732 (Version 1)
Quarter: 2013Q3

REPORT INFORMATION
  Report Type: Spontaneous
  Country: US (occurrence: US)
  Receive Date: 20130708
  Receipt Date: 20130708
  Transmission Date: 20140515
  Serious: Yes (Other)
  Sender: FDA-Public Use
  Company Number: US-TEVA-417068USA

PATIENT
  Sex: Female

DRUGS (1)
  1. AMPHETAMINE W/DEXTROAMPHETAMINE [Suspect]

REACTIONS (5)
  - Coeliac disease [Unknown]
  - Pain in extremity [Unknown]
  - Hypoaesthesia [Unknown]
  - Paraesthesia [Unknown]
  - Neuropathy peripheral [Unknown]
